FAERS Safety Report 6991238-8 (Version None)
Quarter: 2010Q3

REPORT INFORMATION
  Report Type: 
  Country: None (occurrence: None)
  Receive Date: 20100916
  Receipt Date: 20081013
  Transmission Date: 20110219
  Serious: No
  Sender: FDA-Public Use
  Company Number: US-WYE-H06376908

PATIENT
  Age: 58 Year
  Sex: Female
  Weight: 49.94 kg

DRUGS (1)
  1. PREMARIN [Suspect]
     Indication: MENOPAUSE
     Dosage: .625 MG EVERY
     Route: 048

REACTIONS (2)
  - DYSPEPSIA [None]
  - PRODUCT QUALITY ISSUE [None]
